FAERS Safety Report 8233127-7 (Version None)
Quarter: 2012Q1

REPORT INFORMATION
  Report Type: 
  Country: None (occurrence: None)
  Receive Date: 20120326
  Receipt Date: 20120316
  Transmission Date: 20120608
  Serious: No
  Sender: FDA-Public Use
  Company Number: US-BIOGENIDEC-2012BI010156

PATIENT
  Age: 46 Year
  Sex: Male

DRUGS (1)
  1. AVONEX [Suspect]
     Indication: MULTIPLE SCLEROSIS
     Route: 030
     Dates: start: 20050909

REACTIONS (5)
  - MIGRAINE [None]
  - INJECTION SITE HAEMORRHAGE [None]
  - PAIN [None]
  - INFLUENZA LIKE ILLNESS [None]
  - INSOMNIA [None]
